FAERS Safety Report 7288990-3 (Version None)
Quarter: 2011Q1

REPORT INFORMATION
  Report Type: 
  Country: None (occurrence: None)
  Receive Date: 20110211
  Receipt Date: 20110201
  Transmission Date: 20110831
  Serious: Yes (Other)
  Sender: FDA-Public Use
  Company Number: GXKR2010JP11893

PATIENT
  Age: 73 Year
  Sex: Male

DRUGS (5)
  1. LASIX [Suspect]
     Dosage: 20 MG, UNK
     Route: 048
     Dates: end: 20101020
  2. ISCOTIN [Suspect]
     Indication: TUBERCULOUS PLEURISY
     Dosage: 300 MG, UNK
     Route: 048
     Dates: start: 20100928
  3. PYRAMIDE [Suspect]
     Indication: TUBERCULOUS PLEURISY
     Dosage: 1.5 G, UNK
     Route: 048
     Dates: start: 20100928
  4. RIFAMPICIN [Suspect]
     Indication: PULMONARY TUBERCULOSIS
     Dosage: 450 MG, UNK
     Route: 048
     Dates: start: 20100928
  5. ESANBUTOL [Suspect]
     Indication: TUBERCULOUS PLEURISY
     Dosage: 750 MG/DAY
     Route: 048
     Dates: start: 20100928

REACTIONS (1)
  - HYPERURICAEMIA [None]
